FAERS Safety Report 9246344 (Version 1)
Quarter: 2013Q2

REPORT INFORMATION
  Report Type: Other
  Country: US (occurrence: US)
  Receive Date: 20130422
  Receipt Date: 20130422
  Transmission Date: 20140414
  Serious: Yes (Other)
  Sender: FDA-Public Use
  Company Number: US-ACTAVIS-2013-06497

PATIENT
  Sex: 0

DRUGS (1)
  1. DEXTROAMPHETAMINE-AMPHETAMINE (AELLC) [Suspect]
     Indication: PRODUCT USED FOR UNKNOWN INDICATION
     Route: 065

REACTIONS (13)
  - Dissociation [Unknown]
  - Peripheral coldness [Unknown]
  - Feeling abnormal [Unknown]
  - Headache [Unknown]
  - Muscle spasms [Unknown]
  - Condition aggravated [Unknown]
  - Depression [Unknown]
  - Indifference [Unknown]
  - Musculoskeletal chest pain [Unknown]
  - Poor peripheral circulation [Unknown]
  - Pulse pressure decreased [Unknown]
  - Pain in extremity [Unknown]
  - Disturbance in attention [Unknown]
